FAERS Safety Report 17602479 (Version 1)
Quarter: 2020Q1

REPORT INFORMATION
  Report Type: Spontaneous
  Country: US (occurrence: US)
  Receive Date: 20200330
  Receipt Date: 20200330
  Transmission Date: 20200409
  Serious: No
  Sender: FDA-Public Use
  Company Number: US-SEPTODONT-201905654

PATIENT
  Age: 68 Year
  Sex: Male
  Weight: 86 kg

DRUGS (5)
  1. ATENOLOL. [Concomitant]
     Active Substance: ATENOLOL
  2. LIDOCAINE HYDROCHLORIDE AND EPINEPHRINE BITARTRATE [Suspect]
     Active Substance: EPINEPHRINE BITARTRATE\LIDOCAINE HYDROCHLORIDE
     Indication: NERVE BLOCK
     Dosage: RECEIVED 2 CARPULES
     Route: 004
     Dates: start: 20191106, end: 20191106
  3. TOPICAL BENZOCAINE 20% [Concomitant]
     Indication: DENTAL LOCAL ANAESTHESIA
     Route: 061
     Dates: start: 20191106, end: 20191106
  4. ALLOPURINOL. [Concomitant]
     Active Substance: ALLOPURINOL
  5. COLCHINE [Concomitant]
     Active Substance: COLCHICINE

REACTIONS (7)
  - Muscle spasms [Recovering/Resolving]
  - Pain [Recovering/Resolving]
  - Nausea [Recovering/Resolving]
  - Pain in jaw [Recovering/Resolving]
  - Drug ineffective [Recovering/Resolving]
  - Abdominal discomfort [Recovering/Resolving]
  - Tenderness [Recovering/Resolving]

NARRATIVE: CASE EVENT DATE: 20191106
